FAERS Safety Report 26195988 (Version 1)
Quarter: 2025Q4

REPORT INFORMATION
  Report Type: Spontaneous
  Country: GB (occurrence: GB)
  Receive Date: 20251224
  Receipt Date: 20251224
  Transmission Date: 20260117
  Serious: Yes (Other)
  Sender: ASCEND THERAPEUTICS US, LLC
  Company Number: GB-Ascend Therapeutics US, LLC-2191213

PATIENT

DRUGS (2)
  1. ESTROGEL [Suspect]
     Active Substance: ESTRADIOL
     Indication: Menopause
     Dates: start: 20251127
  2. ESTRADIOL [Suspect]
     Active Substance: ESTRADIOL
     Dates: start: 20251127

REACTIONS (5)
  - Menopausal symptoms [Unknown]
  - Drug ineffective [Unknown]
  - Discomfort [Unknown]
  - Application site pain [Unknown]
  - Liquid product physical issue [Unknown]
